FAERS Safety Report 5832880-7 (Version None)
Quarter: 2008Q3

REPORT INFORMATION
  Report Type: 
  Country: None (occurrence: None)
  Receive Date: 20080804
  Receipt Date: 20080728
  Transmission Date: 20090109
  Serious: Yes (Hospitalization)
  Sender: FDA-Public Use
  Company Number: FR-PFIZER INC-2008063054

PATIENT
  Age: 53 Year
  Sex: Female

DRUGS (1)
  1. TAHOR [Suspect]

REACTIONS (4)
  - DRUG ERUPTION [None]
  - DYSPNOEA [None]
  - NAUSEA [None]
  - PRURITUS [None]
